FAERS Safety Report 5694394-7 (Version None)
Quarter: 2008Q2

REPORT INFORMATION
  Report Type: 
  Country: None (occurrence: None)
  Receive Date: 20080402
  Receipt Date: 20080318
  Transmission Date: 20081010
  Serious: Yes (Hospitalization)
  Sender: FDA-Public Use
  Company Number: DSA_31627_2008

PATIENT
  Age: 46 Year
  Sex: Female

DRUGS (4)
  1. LORAZEPAM [Suspect]
     Dosage: 15 MG 1X NOT THE PRESCRIBED AMOUNT. ORAL
     Route: 048
     Dates: start: 20080317, end: 20080317
  2. ETHANOL (ALCOHOL - ETHANOL) [Suspect]
     Dosage: 0.5 DF 1X 0.5 BOTTLE VODKA: NOT THE PRESCRIBED AMOUNT. ORAL
     Route: 048
     Dates: start: 20080317, end: 20080317
  3. DIAZEPAM [Suspect]
     Dosage: 10 G 1X NOT THE PRESCRIBED AMOUNT. ORAL
     Route: 048
     Dates: start: 20080317, end: 20080317
  4. SERTRALINE [Suspect]
     Dosage: 50 MG 1X NOT THE PRESCRIBED AMOUNT. ORAL
     Route: 048
     Dates: start: 20080217, end: 20080317

REACTIONS (3)
  - ALCOHOL USE [None]
  - MULTIPLE DRUG OVERDOSE INTENTIONAL [None]
  - SUICIDE ATTEMPT [None]
